FAERS Safety Report 11497237 (Version 3)
Quarter: 2015Q4

REPORT INFORMATION
  Report Type: Report from Study
  Country: US (occurrence: US)
  Receive Date: 20150911
  Receipt Date: 20151016
  Transmission Date: 20160304
  Serious: Yes (Hospitalization, Other)
  Sender: FDA-Public Use
  Company Number: US-PFIZER INC-2015298870

PATIENT
  Age: 17 Year
  Sex: Male
  Weight: 62 kg

DRUGS (14)
  1. METHOTREXATE [Suspect]
     Active Substance: METHOTREXATE
     Dosage: COURSE A, B: 3000 MG/M2, CYCLIC OVER 3 HOURS ON DAY 1
     Route: 042
  2. HYDROCORTISONE. [Concomitant]
     Active Substance: HYDROCORTISONE
     Indication: ANAPLASTIC LARGE CELL LYMPHOMA T- AND NULL-CELL TYPES
     Dosage: PROPHASE: 7.5-12 MG, ON DAY 1 (AGE BASED DOSING)
     Route: 037
     Dates: start: 20140708, end: 20140708
  3. DOXORUBICIN HYDROCHLORIDE. [Concomitant]
     Active Substance: DOXORUBICIN HYDROCHLORIDE
     Indication: ANAPLASTIC LARGE CELL LYMPHOMA T- AND NULL-CELL TYPES
     Dosage: COURSE B: 25 MG/M2, CYCLIC OVER 1-15 MIN ON DAYS 4 AND 5
     Route: 042
  4. CRIZOTINIB [Suspect]
     Active Substance: CRIZOTINIB
     Indication: ANAPLASTIC LARGE CELL LYMPHOMA T- AND NULL-CELL TYPES
     Dosage: COURSE A, B: 165 MG/M2, CYCLIC (TWICE DAILY ON DAYS 1-21)
     Route: 048
  5. CYTARABINE. [Suspect]
     Active Substance: CYTARABINE
     Indication: ANAPLASTIC LARGE CELL LYMPHOMA T- AND NULL-CELL TYPES
     Dosage: PROPHASE: 15-24 MG IT ON DAY 1 (AGE BASED DOSING)
     Route: 037
     Dates: start: 20140708
  6. DEXAMETHASONE. [Suspect]
     Active Substance: DEXAMETHASONE
     Indication: ANAPLASTIC LARGE CELL LYMPHOMA T- AND NULL-CELL TYPES
     Dosage: PROPHASE: 5MG/M2 ORAL (PO) ONCE DAILY (QD) ON DAYS 1-2, AND 5MG/M2 PO TWICE DAILY (BID) ON DAYS 3-5;
     Route: 048
     Dates: start: 20140708
  7. CYTARABINE. [Suspect]
     Active Substance: CYTARABINE
     Dosage: COURSE A: 150 MG/M2, CYCLIC OVER 1-30 MINUTES EVERY 12 HOURS ON DAYS 4 AND 5
     Route: 042
  8. IFOSFAMIDE. [Suspect]
     Active Substance: IFOSFAMIDE
     Indication: ANAPLASTIC LARGE CELL LYMPHOMA T- AND NULL-CELL TYPES
     Dosage: COURSE A: 800 MG/M2, CYCLIC OVER 60 MIN ON DAYS 1-5
     Route: 042
  9. DEXAMETHASONE. [Suspect]
     Active Substance: DEXAMETHASONE
     Dosage: COURSE A, B: 5 MG/M2, CYCLIC TWICE DAILY ON DAYS 1-5
     Route: 048
  10. VP-16 [Suspect]
     Active Substance: ETOPOSIDE
     Indication: ANAPLASTIC LARGE CELL LYMPHOMA T- AND NULL-CELL TYPES
     Dosage: COURSE A: 100 MG/M2, CYCLIC OVER 2 HOURS ON DAYS 4 AND 5
     Route: 042
  11. METHOTREXATE [Suspect]
     Active Substance: METHOTREXATE
     Indication: ANAPLASTIC LARGE CELL LYMPHOMA T- AND NULL-CELL TYPES
     Dosage: PROPHASE: 7.5-12 MG INTRATHECAL ON DAY 1 (AGE BASED DOSING)
     Route: 037
     Dates: start: 20140708
  12. NEULASTA [Suspect]
     Active Substance: PEGFILGRASTIM
  13. CYCLOPHOSPHAMIDE. [Concomitant]
     Active Substance: CYCLOPHOSPHAMIDE
     Indication: ANAPLASTIC LARGE CELL LYMPHOMA T- AND NULL-CELL TYPES
     Dosage: PROPHASE: 200 MG/M2, OVER 15-30 MINUTES ON DAYS 1-2
     Route: 042
     Dates: start: 20140708
  14. CYCLOPHOSPHAMIDE. [Concomitant]
     Active Substance: CYCLOPHOSPHAMIDE
     Dosage: COURSE B: 200 MG/M2, CYCLIC OVER 15-30 MINUTES ON DAYS 1-5
     Route: 042

REACTIONS (2)
  - Back pain [Recovered/Resolved]
  - Hypertension [Recovered/Resolved]

NARRATIVE: CASE EVENT DATE: 20141016
